FAERS Safety Report 8005365-X (Version None)
Quarter: 2011Q4

REPORT INFORMATION
  Report Type: 
  Country: None (occurrence: None)
  Receive Date: 20111223
  Receipt Date: 20111221
  Transmission Date: 20120403
  Serious: Yes (Other)
  Sender: FDA-Public Use
  Company Number: CN-PFIZER INC-2011309451

PATIENT
  Age: 62 Year
  Sex: Female

DRUGS (2)
  1. CALCIUM CARBONATE [Concomitant]
     Dosage: 2 TABLETS, DAILY
     Route: 048
     Dates: start: 20110101
  2. AROMASIN [Suspect]
     Indication: BREAST CANCER
     Dosage: 1 TABLET (25MG) ONCE DAILY
     Route: 048
     Dates: start: 20110709

REACTIONS (5)
  - ARTHRALGIA [None]
  - FATIGUE [None]
  - TRANSAMINASES INCREASED [None]
  - OSTEOPOROSIS [None]
  - ASTHENIA [None]
